FAERS Safety Report 17436077 (Version 1)
Quarter: 2020Q1

REPORT INFORMATION
  Report Type: Spontaneous
  Country: SK (occurrence: SK)
  Receive Date: 20200219
  Receipt Date: 20200219
  Transmission Date: 20200409
  Serious: Yes (Death, Hospitalization, Other)
  Sender: FDA-Public Use
  Company Number: SK-SHIRE-SK202005566

PATIENT

DRUGS (1)
  1. HYQVIA [Suspect]
     Active Substance: HUMAN IMMUNOGLOBULIN G\HYALURONIDASE RECOMBINANT HUMAN
     Indication: PLASMA CELL MYELOMA
     Dosage: UNK, 1X A MONTH
     Route: 065
     Dates: start: 20190121

REACTIONS (3)
  - Hospitalisation [Unknown]
  - Intentional product use issue [Unknown]
  - Death [Fatal]
